FAERS Safety Report 6046121-1 (Version None)
Quarter: 2009Q1

REPORT INFORMATION
  Report Type: 
  Country: None (occurrence: None)
  Receive Date: 20090121
  Receipt Date: 20090121
  Transmission Date: 20090719
  Serious: Yes (Hospitalization)
  Sender: FDA-Public Use
  Company Number: None

PATIENT
  Sex: Female
  Weight: 81.6475 kg

DRUGS (2)
  1. TARCEVA [Suspect]
     Indication: BREAST CANCER
     Dosage: 100 MG PO DAILY
     Route: 048
  2. EVEROLIMUS [Suspect]
     Indication: BREAST CANCER
     Dosage: 2.5 MG PO DAILY
     Route: 048

REACTIONS (5)
  - ANAEMIA [None]
  - ASTHENIA [None]
  - COUGH [None]
  - HYPOCALCAEMIA [None]
  - NASAL CONGESTION [None]
